FAERS Safety Report 25002533 (Version 2)
Quarter: 2025Q1

REPORT INFORMATION
  Report Type: Spontaneous
  Country: US (occurrence: US)
  Receive Date: 20250224
  Receipt Date: 20250307
  Transmission Date: 20250409
  Serious: No
  Sender: Kenvue
  Company Number: US-KENVUE-20250108831

PATIENT
  Sex: Female

DRUGS (1)
  1. MENS ROGAINE EXTRA STRENGTH [Suspect]
     Active Substance: MINOXIDIL
     Indication: Alopecia
     Dosage: ABOUT TWO YEARS/ A WHILE AGO, HALF OF CAPFUL , TWICE A DAY
     Route: 061

REACTIONS (2)
  - Off label use [Unknown]
  - Product container issue [Unknown]
